FAERS Safety Report 6081247-8 (Version None)
Quarter: 2009Q1

REPORT INFORMATION
  Report Type: 
  Country: None (occurrence: None)
  Receive Date: 20090213
  Receipt Date: 20090210
  Transmission Date: 20090719
  Serious: Yes (Hospitalization)
  Sender: FDA-Public Use
  Company Number: 1000001275

PATIENT
  Age: 45 Year
  Sex: Female
  Weight: 71.2147 kg

DRUGS (6)
  1. SAVELLA [Suspect]
     Indication: FIBROMYALGIA
     Dosage: 100 MG (50 MG, 2 IN 1 D), ORAL
     Route: 048
     Dates: start: 20080708
  2. OMEPRAZOLE [Concomitant]
  3. ACETAMINOPHEN [Suspect]
  4. IBUPROFEN [Concomitant]
  5. ALBUTEROL [Concomitant]
  6. LORATADINE [Concomitant]

REACTIONS (12)
  - ATELECTASIS [None]
  - BLOOD GLUCOSE INCREASED [None]
  - CLOSTRIDIUM DIFFICILE COLITIS [None]
  - CULTURE STOOL POSITIVE [None]
  - DEHYDRATION [None]
  - DIVERTICULITIS [None]
  - ESCHERICHIA INFECTION [None]
  - NAUSEA [None]
  - PLEURAL EFFUSION [None]
  - PNEUMONIA [None]
  - URINARY TRACT INFECTION [None]
  - VOMITING [None]
